FAERS Safety Report 9503491 (Version 2)
Quarter: 2013Q3

REPORT INFORMATION
  Report Type: Spontaneous
  Country: CA (occurrence: CA)
  Receive Date: 20130906
  Receipt Date: 20130916
  Transmission Date: 20140515
  Serious: Yes (Hospitalization)
  Sender: FDA-Public Use
  Company Number: CA-PFIZER INC-2013252022

PATIENT
  Age: 65 Year
  Sex: Male

DRUGS (1)
  1. INLYTA [Suspect]
     Indication: RENAL CELL CARCINOMA
     Dosage: 5 MG, 2X/DAY, CYCLIC
     Dates: start: 20130603, end: 20130827

REACTIONS (3)
  - Skin lesion [Recovering/Resolving]
  - Skin infection [Recovering/Resolving]
  - Vomiting [Recovered/Resolved]
